FAERS Safety Report 21602139 (Version 2)
Quarter: 2024Q1

REPORT INFORMATION
  Report Type: Report from Study
  Country: CA (occurrence: CA)
  Receive Date: 20221116
  Receipt Date: 20240116
  Transmission Date: 20240410
  Serious: Yes (Other)
  Sender: FDA-Public Use
  Company Number: None

PATIENT
  Age: 76 Year
  Sex: Male

DRUGS (14)
  1. MONTELUKAST [Suspect]
     Active Substance: MONTELUKAST SODIUM
     Indication: Product used for unknown indication
     Dosage: EVERY 1 DAYS
     Route: 065
  2. OMALIZUMAB [Suspect]
     Active Substance: OMALIZUMAB
     Indication: Asthma
     Route: 058
  3. PENICILLIN G BENZATHINE [Suspect]
     Active Substance: PENICILLIN G BENZATHINE
     Indication: Product used for unknown indication
     Dosage: POWDER AND SOLVENT FOR SOLUTION FOR INJECTION
     Route: 065
  4. VENTOLIN [Concomitant]
     Active Substance: ALBUTEROL SULFATE
     Indication: Product used for unknown indication
     Dosage: EVERY 1 DAYS
  5. AZITHROMYCIN [Concomitant]
     Active Substance: AZITHROMYCIN
     Indication: Product used for unknown indication
  6. BUDESONIDE\FORMOTEROL FUMARATE [Concomitant]
     Active Substance: BUDESONIDE\FORMOTEROL FUMARATE
     Indication: Product used for unknown indication
     Dosage: EVERY 1 DAYS
  7. PREDNISONE [Concomitant]
     Active Substance: PREDNISONE
     Indication: Product used for unknown indication
     Dosage: 2 EVERY 1 DAYS
     Route: 048
  8. SPIRIVA [Concomitant]
     Active Substance: TIOTROPIUM BROMIDE MONOHYDRATE
     Indication: Product used for unknown indication
     Dosage: EVERY 1 DAYS
  9. TAMSULOSIN [Concomitant]
     Active Substance: TAMSULOSIN
     Indication: Product used for unknown indication
     Dosage: EVERY 1 DAYS
     Route: 048
  10. OMALIZUMAB [Suspect]
     Active Substance: OMALIZUMAB
     Indication: Asthma
     Dosage: POWDER AND SOLVENT FOR SOLUTION FOR INJECTION
     Route: 058
  11. OMALIZUMAB [Suspect]
     Active Substance: OMALIZUMAB
     Indication: Asthma
     Dosage: POWDER AND SOLVENT FOR SOLUTION FOR INJECTION
     Route: 058
  12. OMALIZUMAB [Suspect]
     Active Substance: OMALIZUMAB
     Indication: Asthma
     Route: 058
  13. PENICILLIN G BENZATHINE [Suspect]
     Active Substance: PENICILLIN G BENZATHINE
     Indication: Product used for unknown indication
     Dosage: POWDER AND SOLVENT FOR SOLUTION FOR INJECTION
     Route: 058
  14. PENICILLIN G BENZATHINE [Suspect]
     Active Substance: PENICILLIN G BENZATHINE
     Indication: Product used for unknown indication
     Dosage: POWDER AND SOLVENT FOR SOLUTION FOR INJECTION
     Route: 058

REACTIONS (8)
  - Asthma [Not Recovered/Not Resolved]
  - Bladder discomfort [Not Recovered/Not Resolved]
  - Blood pressure increased [Not Recovered/Not Resolved]
  - Drug hypersensitivity [Not Recovered/Not Resolved]
  - Hot flush [Not Recovered/Not Resolved]
  - Urinary tract infection [Not Recovered/Not Resolved]
  - Chest pain [Not Recovered/Not Resolved]
  - Inappropriate schedule of product administration [Not Recovered/Not Resolved]
